FAERS Safety Report 8095027-5 (Version None)
Quarter: 2012Q1

REPORT INFORMATION
  Report Type: 
  Country: None (occurrence: None)
  Receive Date: 20120131
  Receipt Date: 20120131
  Transmission Date: 20120608
  Serious: Yes (Other)
  Sender: FDA-Public Use
  Company Number: None

PATIENT
  Sex: Male

DRUGS (1)
  1. SODIUM FERRIC GLUCONATE [Suspect]
     Indication: ANAEMIA
     Dosage: 250MG
     Route: 041
     Dates: start: 20120127, end: 20120127

REACTIONS (2)
  - DYSPNOEA [None]
  - FLUSHING [None]
